FAERS Safety Report 11292390 (Version 1)
Quarter: 2015Q3

REPORT INFORMATION
  Report Type: Spontaneous
  Country: US (occurrence: None)
  Receive Date: 20150721
  Receipt Date: 20150721
  Transmission Date: 20151125
  Serious: Yes (Other)
  Sender: FDA-Public Use
  Company Number: None

PATIENT
  Age: 39 Year
  Sex: Female
  Weight: 74.84 kg

DRUGS (1)
  1. ARM + HAMMER COMPLETE PLUS WHITENING [Suspect]
     Active Substance: SODIUM FLUORIDE
     Indication: DENTAL DISORDER PROPHYLAXIS
     Dosage: APPLIED TO A SURFACE, USUALLY THE SKIN
     Dates: start: 20150713, end: 20150717

REACTIONS (6)
  - Ageusia [None]
  - Oral discomfort [None]
  - Oral mucosal eruption [None]
  - Dysgeusia [None]
  - Hypoaesthesia oral [None]
  - Gingival pain [None]

NARRATIVE: CASE EVENT DATE: 20150713
